FAERS Safety Report 8453900 (Version 2)
Quarter: 2013Q4

REPORT INFORMATION
  Report Type: Spontaneous
  Country: US (occurrence: US)
  Receive Date: 20120312
  Receipt Date: 20131003
  Transmission Date: 20140711
  Serious: Yes (Hospitalization, Other)
  Sender: FDA-Public Use
  Company Number: US-MERCK-1203USA01168

PATIENT
  Sex: Female

DRUGS (12)
  1. FOSAMAX [Suspect]
     Indication: OSTEOPOROSIS PROPHYLAXIS
     Dosage: 70 MG, UNK
     Route: 048
     Dates: start: 20050506, end: 20100317
  2. FOSAMAX [Suspect]
     Dosage: 35 MG, UNK
     Route: 048
  3. ALENDRONATE SODIUM [Suspect]
     Indication: OSTEOPOROSIS PROPHYLAXIS
     Dosage: 70 MG, UNK
     Route: 048
     Dates: start: 20050506, end: 20100317
  4. PROTONIX [Concomitant]
     Dosage: 40 MG, QD
     Dates: start: 1989
  5. PREDNISONE [Concomitant]
     Indication: SYSTEMIC LUPUS ERYTHEMATOSUS
  6. CORTICOSTEROIDS (UNSPECIFIED) [Concomitant]
     Dosage: UNK
     Dates: start: 200505, end: 200811
  7. OMEGA-3 MARINE TRIGLYCERIDES [Concomitant]
     Dosage: 1000 MG, UNK
  8. LISINOPRIL [Concomitant]
     Dosage: 10 MG, QD
     Route: 048
  9. PLAQUENIL [Concomitant]
     Dosage: 200 MG, BID
  10. SYNTHROID [Concomitant]
     Dosage: 75 MICROGRAM, QD
  11. VITAMIN D (UNSPECIFIED) [Concomitant]
     Dosage: 5000 IU, QW
  12. VICODIN [Concomitant]
     Dosage: UNK UNK, PRN

REACTIONS (6)
  - Femur fracture [Unknown]
  - Intramedullary rod insertion [Unknown]
  - Low turnover osteopathy [Unknown]
  - Haemoglobin decreased [Unknown]
  - Fall [Unknown]
  - Adverse event [Unknown]
